FAERS Safety Report 18557548 (Version 1)
Quarter: 2020Q4

REPORT INFORMATION
  Report Type: Spontaneous
  Country: US (occurrence: US)
  Receive Date: 20201130
  Receipt Date: 20201130
  Transmission Date: 20210114
  Serious: Yes (Other)
  Sender: FDA-Public Use
  Company Number: US-DRREDDYS-USA/USA/20/0129376

PATIENT
  Age: 28 Year
  Sex: Female

DRUGS (2)
  1. ZENATANE [Suspect]
     Active Substance: ISOTRETINOIN
     Dosage: RMA ISSUE DATE 9/14/2020 11:23:25 AM,7/7/2020 1:10:31 PM AND 2/17/2020 1:47:26 PM
     Route: 048
  2. ZENATANE [Suspect]
     Active Substance: ISOTRETINOIN
     Indication: PRODUCT USED FOR UNKNOWN INDICATION
     Dosage: RMA ISSUE DATE 10/20/2020 12:28:04 PM, 8/6/2020 3:15:38 PM AND 2/17/2020 1:47:26 PM
     Route: 048

REACTIONS (1)
  - Depression [Unknown]
